FAERS Safety Report 4634229-4 (Version None)
Quarter: 2005Q2

REPORT INFORMATION
  Report Type: 
  Country: None (occurrence: None)
  Receive Date: 20050325
  Receipt Date: 20041220
  Transmission Date: 20051028
  Serious: No
  Sender: FDA-Public Use
  Company Number: USA041183721

PATIENT
  Age: 77 Year
  Sex: Female

DRUGS (8)
  1. FORTEO [Suspect]
     Indication: OSTEOPOROSIS
     Dosage: 20 UG/ONCE DAY
     Dates: start: 20041012
  2. EVISTA [Concomitant]
  3. FOSAMAX (ALENDRONAT SODIUM) [Concomitant]
  4. CALCIUM GLUCONATE [Concomitant]
  5. COZAAR [Concomitant]
  6. SYNTHROID [Concomitant]
  7. MULTI-VITAMIN [Concomitant]
  8. ASPIRIN [Concomitant]

REACTIONS (2)
  - EYELID OEDEMA [None]
  - INJECTION SITE HAEMORRHAGE [None]
